FAERS Safety Report 15797090 (Version 1)
Quarter: 2019Q1

REPORT INFORMATION
  Report Type: Spontaneous
  Country: US (occurrence: US)
  Receive Date: 20190107
  Receipt Date: 20190107
  Transmission Date: 20190417
  Serious: Yes (Other)
  Sender: FDA-Public Use
  Company Number: None

PATIENT
  Age: 64 Year
  Sex: Male
  Weight: 114.3 kg

DRUGS (6)
  1. GLIMEPIRIDE. [Concomitant]
     Active Substance: GLIMEPIRIDE
  2. ASPRIN [Concomitant]
     Active Substance: ASPIRIN
  3. ONGLYZA [Concomitant]
     Active Substance: SAXAGLIPTIN HYDROCHLORIDE
  4. IRBESARTAN. [Concomitant]
     Active Substance: IRBESARTAN
  5. FARXGIA [Concomitant]
  6. CARVIDERLOL [Suspect]
     Active Substance: CARVEDILOL
     Route: 048

REACTIONS (2)
  - Memory impairment [None]
  - Movement disorder [None]

NARRATIVE: CASE EVENT DATE: 20160925
